FAERS Safety Report 5299388-1 (Version None)
Quarter: 2007Q2

REPORT INFORMATION
  Report Type: 
  Country: None (occurrence: None)
  Receive Date: 20070417
  Receipt Date: 20070407
  Transmission Date: 20071010
  Serious: Yes (Hospitalization)
  Sender: FDA-Public Use
  Company Number: PHHO2007IN05216

PATIENT
  Age: 38 Year
  Sex: Male
  Weight: 69 kg

DRUGS (2)
  1. NO TREATMENT RECEIVED NOMED [Suspect]
     Indication: RENAL TRANSPLANT
     Dosage: UNK, UNK
     Route: 048
  2. NEORAL [Suspect]
     Indication: RENAL TRANSPLANT
     Dosage: 75MG / DAILY
     Route: 048
     Dates: start: 20060304

REACTIONS (9)
  - ABDOMINAL PAIN LOWER [None]
  - CHEST X-RAY ABNORMAL [None]
  - CHILLS [None]
  - CHRONIC ALLOGRAFT NEPHROPATHY [None]
  - COMPUTERISED TOMOGRAM ABNORMAL [None]
  - ESCHERICHIA INFECTION [None]
  - PULMONARY TUBERCULOSIS [None]
  - PYREXIA [None]
  - VOMITING [None]
